FAERS Safety Report 13923049 (Version 1)
Quarter: 2017Q3

REPORT INFORMATION
  Report Type: Spontaneous
  Country: AT (occurrence: AT)
  Receive Date: 20170831
  Receipt Date: 20170831
  Transmission Date: 20171127
  Serious: Yes (Other)
  Sender: FDA-Public Use
  Company Number: AT-AMGEN-AUTSP2017129381

PATIENT
  Sex: Female
  Weight: 57 kg

DRUGS (17)
  1. EUTHYROX [Concomitant]
     Active Substance: LEVOTHYROXINE SODIUM
     Dosage: 88 (MONDAYS TO SATURDAYS 1 TABLET)
  2. MOTILIUM [Concomitant]
     Active Substance: DOMPERIDONE
     Dosage: UNK UNK, BID
  3. CANDESARTAN CILEXETIL AND HYDROCHLOROTHIAZIDE [Concomitant]
     Active Substance: CANDESARTAN CILEXETIL\HYDROCHLOROTHIAZIDE
     Dosage: 16 MG (12.5)
  4. NEUROBION FORTE [Concomitant]
     Active Substance: CYANOCOBALAMIN\PYRIDOXINE HYDROCHLORIDE\THIAMINE DISULFIDE
     Dosage: UNK (EVERY SECOND DAY)
  5. VITAMINS WITH MINERALS [Concomitant]
     Active Substance: MINERALS\VITAMINS
     Dosage: UNK UNK, BID
  6. CYNARIX [Concomitant]
     Dosage: UNK UNK, QD
  7. BERODUAL [Concomitant]
     Active Substance: FENOTEROL HYDROBROMIDE\IPRATROPIUM BROMIDE
     Dosage: UNK (AS REQUIRED)
  8. AMLODIPINE [Concomitant]
     Active Substance: AMLODIPINE BESYLATE
     Dosage: 5 MG, QD
  9. CALCIDURAN [Concomitant]
     Dosage: UNK UNK, BID
  10. TEBOFORTAN [Concomitant]
     Active Substance: GINKGO
     Dosage: UNK UNK, BID
  11. ESTROFEM [Concomitant]
     Active Substance: ESTRADIOL CYPIONATE
     Dosage: 1 MG, (HALF DOSE EVERY THIRD DAY)
  12. NAXID [Concomitant]
     Dosage: UNK (TWO TIMES INTERMITTENTLY)
  13. PROLIA [Suspect]
     Active Substance: DENOSUMAB
     Indication: OSTEOPOROSIS
     Dosage: UNK
     Route: 058
     Dates: start: 20140808
  14. OLEOVIT D3 [Concomitant]
     Active Substance: CHOLECALCIFEROL
     Dosage: (7-10 DAILY, DEPENDING ON SUNLIGHT)
  15. DAFLON [Concomitant]
     Active Substance: DIOSMIN\HESPERIDIN
     Dosage: UNK (TWO DOSES AT BED TIME)
  16. CARTEXAN [Concomitant]
     Dosage: 400 MG, BID
  17. FOLSAN [Concomitant]
     Active Substance: FOLIC ACID
     Dosage: UNK(HALF DOSE)

REACTIONS (11)
  - Osteonecrosis of jaw [Recovered/Resolved]
  - Weight decreased [Unknown]
  - Pneumonia [Unknown]
  - Medical device removal [Unknown]
  - Abdominal pain upper [Unknown]
  - Deafness [Unknown]
  - Thyroidectomy [Unknown]
  - Peri-implantitis [Not Recovered/Not Resolved]
  - Tumour marker increased [Unknown]
  - Arthroscopy [Unknown]
  - Periodontitis [Not Recovered/Not Resolved]

NARRATIVE: CASE EVENT DATE: 201409
